FAERS Safety Report 7542226-4 (Version None)
Quarter: 2011Q2

REPORT INFORMATION
  Report Type: 
  Country: None (occurrence: None)
  Receive Date: 20110613
  Receipt Date: 20110608
  Transmission Date: 20111010
  Serious: Yes (Other)
  Sender: FDA-Public Use
  Company Number: BR-PFIZER INC-2011124655

PATIENT
  Age: 72 Year
  Sex: Male
  Weight: 68 kg

DRUGS (5)
  1. LOSARTAN POTASSIUM [Concomitant]
     Indication: BLOOD PRESSURE MANAGEMENT
     Dosage: 50 MG, UNK
  2. LIPITOR [Suspect]
     Indication: BLOOD CHOLESTEROL INCREASED
     Dosage: 20 MG, ALTERNATE DAY
     Route: 048
     Dates: start: 20110603, end: 20110601
  3. DUOMO [Concomitant]
     Indication: PROSTATIC DISORDER
     Dosage: 2 MG, UNK
     Dates: start: 20110501
  4. CLOPIDOGREL BISULFATE [Concomitant]
     Indication: CARDIOVASCULAR DISORDER
     Dosage: UNK
  5. ASPIRIN [Concomitant]
     Dosage: 10 MG, UNK

REACTIONS (3)
  - PAIN [None]
  - BONE PAIN [None]
  - INSOMNIA [None]
